FAERS Safety Report 15748413 (Version 5)
Quarter: 2025Q4

REPORT INFORMATION
  Report Type: Spontaneous
  Country: EU (occurrence: EU)
  Receive Date: 20181221
  Receipt Date: 20251009
  Transmission Date: 20260118
  Serious: Yes (Death, Other)
  Sender: AUROBINDO
  Company Number: EU-AUROBINDO-AUR-APL-2018-060497

PATIENT
  Age: 71 Year
  Sex: Male

DRUGS (15)
  1. OXALIPLATIN [Suspect]
     Active Substance: OXALIPLATIN
     Indication: Colon cancer
     Dosage: 130 MILLIGRAM/SQ. METER,UNK (8 COURSES)
     Route: 065
     Dates: start: 2011
  2. OXALIPLATIN [Suspect]
     Active Substance: OXALIPLATIN
     Indication: Colon cancer stage III
  3. CARBOPLATIN [Suspect]
     Active Substance: CARBOPLATIN
     Indication: Non-small cell lung cancer stage IV
     Dosage: FIVE COURSES
     Route: 065
     Dates: end: 201506
  4. CAPECITABINE [Suspect]
     Active Substance: CAPECITABINE
     Indication: Colon cancer
     Dosage: 1000 MILLIGRAM/SQ. METER, DAILY, (DAY 1-14 CYCLE; ONCE IN THREE WEEKS )
     Route: 065
  5. CAPECITABINE [Suspect]
     Active Substance: CAPECITABINE
     Indication: Lung neoplasm malignant
     Dosage: UNK (8 COURSES)
     Route: 065
  6. CAPECITABINE [Suspect]
     Active Substance: CAPECITABINE
     Dosage: UNK
     Route: 065
     Dates: start: 2011
  7. PEMETREXED [Suspect]
     Active Substance: PEMETREXED
     Indication: Non-small cell lung cancer stage IV
     Dosage: FIVE COURSES
     Route: 065
     Dates: end: 201506
  8. PEMETREXED [Suspect]
     Active Substance: PEMETREXED
     Dosage: UNK
     Route: 065
     Dates: start: 201506
  9. CERITINIB [Concomitant]
     Active Substance: CERITINIB
     Indication: Colon cancer
     Dosage: 600 MILLIGRAM, (3 WEEK)
     Route: 065
  10. CERITINIB [Concomitant]
     Active Substance: CERITINIB
     Indication: Non-small cell lung cancer stage IV
  11. CERITINIB [Concomitant]
     Active Substance: CERITINIB
     Indication: Colon cancer stage III
  12. Carboplatin;Pemetrexed [Concomitant]
     Indication: Colon cancer stage III
     Dosage: UNK
     Route: 065
     Dates: start: 201502
  13. Carboplatin;Pemetrexed [Concomitant]
     Dosage: UNK
     Route: 065
     Dates: start: 201506
  14. IRINOTECAN [Concomitant]
     Active Substance: IRINOTECAN
     Indication: Colon cancer stage III
     Dosage: UNK
     Route: 065
  15. TIPIRACIL HYDROCHLORIDE\TRIFLURIDINE [Concomitant]
     Active Substance: TIPIRACIL HYDROCHLORIDE\TRIFLURIDINE
     Indication: Product used for unknown indication
     Dosage: UNK
     Route: 065

REACTIONS (12)
  - Palmar-plantar erythrodysaesthesia syndrome [Fatal]
  - Lung carcinoma cell type unspecified stage IV [Recovering/Resolving]
  - Second primary malignancy [Unknown]
  - Colon cancer metastatic [Unknown]
  - Non-small cell lung cancer metastatic [Unknown]
  - Malignant neoplasm progression [Unknown]
  - Metastases to liver [Unknown]
  - Malignant pleural effusion [Unknown]
  - Metastases to adrenals [Unknown]
  - Product use in unapproved indication [Unknown]
  - Diarrhoea [Unknown]
  - Nausea [Unknown]

NARRATIVE: CASE EVENT DATE: 20150601
